FAERS Safety Report 7414269-2 (Version None)
Quarter: 2011Q1

REPORT INFORMATION
  Report Type: 
  Country: None (occurrence: None)
  Receive Date: 20110302
  Receipt Date: 20101221
  Transmission Date: 20110831
  Serious: Yes (Other)
  Sender: FDA-Public Use
  Company Number: 312534

PATIENT
  Age: 80 Year
  Sex: Female
  Weight: 73.5 kg

DRUGS (6)
  1. NOVOLIN N [Suspect]
     Indication: TYPE 2 DIABETES MELLITUS
     Dosage: 34 IU, QD, SUBCUTANEOUS
     Route: 058
     Dates: start: 20100720
  2. NOVOLIN R [Suspect]
     Indication: TYPE 2 DIABETES MELLITUS
     Dosage: 15 IU, QD, SUBCUTANEOUS
     Route: 058
     Dates: start: 20100720
  3. PRAVASTATIN SODIUM [Concomitant]
  4. MULTIPLE VITAMINS (ASCORBIC ACID, ERGOCALCIFEROL, FOLIC ACID, RETINOL, [Concomitant]
  5. TRAZODONE (TRAZODONE) [Concomitant]
  6. LISINOPRIL/HCTZ (HYDROCHLOROTHIAZIDE, LISINOPRIL) [Concomitant]

REACTIONS (8)
  - HEADACHE [None]
  - PARAESTHESIA [None]
  - EAR DISCOMFORT [None]
  - DIZZINESS [None]
  - NAUSEA [None]
  - BLOOD GLUCOSE INCREASED [None]
  - ASTHENIA [None]
  - SWOLLEN TONGUE [None]
